FAERS Safety Report 24384976 (Version 1)
Quarter: 2024Q4

REPORT INFORMATION
  Report Type: Report from Study
  Country: JP (occurrence: JP)
  Receive Date: 20241001
  Receipt Date: 20241001
  Transmission Date: 20250114
  Serious: Yes (Death, Hospitalization)
  Sender: AKEBIA THERAPEUTICS
  Company Number: JP-MTPC-MTPC2022-0014391

PATIENT
  Age: 81 Year
  Sex: Male
  Weight: 52.3 kg

DRUGS (9)
  1. VADADUSTAT [Suspect]
     Active Substance: VADADUSTAT
     Indication: Nephrogenic anaemia
     Dosage: 300 MILLIGRAM, QD
     Route: 048
     Dates: start: 20220412, end: 20220516
  2. VADADUSTAT [Suspect]
     Active Substance: VADADUSTAT
     Dosage: 150 MILLIGRAM, QD
     Route: 048
     Dates: start: 20220517, end: 20220530
  3. AMLODIPINE BESYLATE\TELMISARTAN [Concomitant]
     Active Substance: AMLODIPINE BESYLATE\TELMISARTAN
     Indication: Product used for unknown indication
     Dosage: 1 DOSAGE FORM, QD
     Route: 048
     Dates: start: 20220322
  4. AZOSEMIDE [Concomitant]
     Active Substance: AZOSEMIDE
     Indication: Prophylaxis
     Dosage: 60 MILLIGRAM, QD
     Route: 048
  5. SENNOSIDES A AND B [Concomitant]
     Active Substance: SENNOSIDES A AND B
     Indication: Illness
     Dosage: 12 MILLIGRAM, QD
     Route: 048
     Dates: end: 20220526
  6. LACTULOSE [Concomitant]
     Active Substance: LACTULOSE
     Indication: Illness
     Dosage: 48 GRAM, QD
     Route: 048
     Dates: end: 20220526
  7. LINAGLIPTIN [Concomitant]
     Active Substance: LINAGLIPTIN
     Indication: Illness
     Dosage: 5 MILLIGRAM, QD
     Route: 048
  8. REPAGLINIDE [Concomitant]
     Active Substance: REPAGLINIDE
     Indication: Illness
     Dosage: 1.5 MILLIGRAM, QD
     Route: 048
  9. MIGLITOL OD [Concomitant]
     Indication: Illness
     Dosage: 150 MILLIGRAM, QD
     Route: 048

REACTIONS (2)
  - Death [Fatal]
  - Iliac artery stenosis [Recovering/Resolving]

NARRATIVE: CASE EVENT DATE: 20220529
